FAERS Safety Report 4547612-2 (Version None)
Quarter: 2004Q4

REPORT INFORMATION
  Report Type: 
  Country: None (occurrence: None)
  Receive Date: 20041223
  Receipt Date: 20040921
  Transmission Date: 20050328
  Serious: Yes (Other)
  Sender: FDA-Public Use
  Company Number: US-JNJFOC-20040502221

PATIENT
  Age: 43 Year
  Sex: Female
  Weight: 60.782 kg

DRUGS (3)
  1. ORTHO EVRA [Suspect]
     Indication: CONTRACEPTION
     Dosage: 1 DOSE(S), 3 IN 4 WEEK, TRANSDERMAL
     Route: 062
     Dates: start: 20040202, end: 20040426
  2. TYLENOL [Concomitant]
  3. IBUPROFEN [Concomitant]

REACTIONS (1)
  - DEEP VEIN THROMBOSIS [None]
